FAERS Safety Report 24676810 (Version 1)
Quarter: 2024Q4

REPORT INFORMATION
  Report Type: Spontaneous
  Country: GB (occurrence: GB)
  Receive Date: 20241128
  Receipt Date: 20241128
  Transmission Date: 20250115
  Serious: Yes (Other)
  Sender: ABBVIE
  Company Number: None

PATIENT
  Age: 24 Year
  Sex: Male

DRUGS (3)
  1. ESCITALOPRAM [Suspect]
     Active Substance: ESCITALOPRAM OXALATE
     Indication: Social anxiety disorder
     Dosage: 20MG ONCE A DAY AT NIGHT
     Route: 048
     Dates: start: 20230501
  2. RENNIE [Concomitant]
     Indication: Gastrooesophageal reflux disease
     Route: 065
  3. STREPSILS [Concomitant]
     Indication: Nasal congestion
     Route: 065
     Dates: start: 20241111, end: 20241115

REACTIONS (3)
  - Gastrooesophageal reflux disease [Not Recovered/Not Resolved]
  - Fatigue [Not Recovered/Not Resolved]
  - Dizziness [Not Recovered/Not Resolved]
